FAERS Safety Report 12124571 (Version 1)
Quarter: 2016Q1

REPORT INFORMATION
  Report Type: Spontaneous
  Country: US (occurrence: None)
  Receive Date: 20160226
  Receipt Date: 20160226
  Transmission Date: 20160526
  Serious: Yes (Hospitalization)
  Sender: FDA-Public Use
  Company Number: None

PATIENT
  Age: 58 Year
  Sex: Male
  Weight: 49.9 kg

DRUGS (1)
  1. MEMANTINE HYDROCHLORIDE [Suspect]
     Active Substance: MEMANTINE HYDROCHLORIDE
     Dosage: 1760 MG PATIENT DOSE REDUCED TO 1/2 DOSE - ONLY TAKES AM DOSE BEGINNING 2-9-2015 DUE TO FATIGUE
     Dates: start: 20151111, end: 20160213

REACTIONS (2)
  - Cancer pain [None]
  - Tachycardia [None]

NARRATIVE: CASE EVENT DATE: 20160213
